FAERS Safety Report 5406205-5 (Version None)
Quarter: 2007Q3

REPORT INFORMATION
  Report Type: 
  Country: None (occurrence: None)
  Receive Date: 20070806
  Receipt Date: 20070727
  Transmission Date: 20080115
  Serious: Yes (Hospitalization)
  Sender: FDA-Public Use
  Company Number: PHHO2007IT10126

PATIENT
  Age: 69 Year
  Sex: Female
  Weight: 58 kg

DRUGS (5)
  1. STALEVO VS CARBIDOPA/LEVODOPA [Suspect]
     Indication: PARKINSON'S DISEASE
     Dosage: CODE NOT BROKEN
     Route: 048
     Dates: start: 20051214, end: 20070612
  2. MIRAPEXIN [Concomitant]
  3. DILTIAZEM [Concomitant]
  4. IBUSTRIN [Concomitant]
  5. ANGIZEM [Concomitant]

REACTIONS (3)
  - ABDOMINAL PAIN [None]
  - COLITIS ULCERATIVE [None]
  - DIARRHOEA [None]
